FAERS Safety Report 7287628-9 (Version None)
Quarter: 2011Q1

REPORT INFORMATION
  Report Type: 
  Country: None (occurrence: None)
  Receive Date: 20110208
  Receipt Date: 20110208
  Transmission Date: 20110831
  Serious: Yes (Other)
  Sender: FDA-Public Use
  Company Number: None

PATIENT
  Age: 51 Year
  Weight: 58.9676 kg

DRUGS (1)
  1. ACTONEL [Suspect]
     Indication: OSTEOPENIA
     Dosage: 150 MG ONCE MONTHLY PO
     Route: 048
     Dates: start: 20110110, end: 20110110

REACTIONS (12)
  - HEADACHE [None]
  - NAUSEA [None]
  - DIZZINESS [None]
  - ARTHRALGIA [None]
  - CHILLS [None]
  - FATIGUE [None]
  - DRUG HYPERSENSITIVITY [None]
  - PYREXIA [None]
  - GASTROOESOPHAGEAL REFLUX DISEASE [None]
  - BONE PAIN [None]
  - DISORIENTATION [None]
  - MYALGIA [None]
